FAERS Safety Report 18297021 (Version 1)
Quarter: 2020Q3

REPORT INFORMATION
  Report Type: Spontaneous
  Country: JP (occurrence: JP)
  Receive Date: 20200922
  Receipt Date: 20200922
  Transmission Date: 20201103
  Serious: Yes (Other)
  Sender: FDA-Public Use
  Company Number: JP-ALLERGAN-2030516US

PATIENT
  Sex: Female

DRUGS (3)
  1. BOTOX [Suspect]
     Active Substance: ONABOTULINUMTOXINA
     Indication: HYPERTONIC BLADDER
     Dosage: 100 UNITS, SINGLE
     Route: 030
     Dates: start: 20200527, end: 20200527
  2. EBRANTIL [Suspect]
     Active Substance: URAPIDIL
     Dosage: UNK
     Route: 048
     Dates: start: 202006
  3. EBRANTIL [Suspect]
     Active Substance: URAPIDIL
     Indication: DYSURIA
     Dosage: UNK, QD
     Route: 048
     Dates: start: 20200722

REACTIONS (6)
  - Residual urine volume increased [Not Recovered/Not Resolved]
  - Dysuria [Unknown]
  - Cystitis [Unknown]
  - Bladder catheter temporary [Not Recovered/Not Resolved]
  - Drug-induced liver injury [Unknown]
  - Hepatic function abnormal [Unknown]

NARRATIVE: CASE EVENT DATE: 202006
